FAERS Safety Report 15296341 (Version 1)
Quarter: 2018Q3

REPORT INFORMATION
  Report Type: Spontaneous
  Country: US (occurrence: US)
  Receive Date: 20180807
  Receipt Date: 20180807
  Transmission Date: 20181010
  Serious: Yes (Disabling, Other)
  Sender: FDA-Public Use
  Company Number: None

PATIENT
  Age: 67 Year
  Sex: Female
  Weight: 70.65 kg

DRUGS (1)
  1. SAVELLA [Suspect]
     Active Substance: MILNACIPRAN HYDROCHLORIDE
     Indication: FIBROMYALGIA
     Dosage: ?          QUANTITY:2 TABLET(S);?
     Route: 048
     Dates: start: 20180802, end: 20180802

REACTIONS (16)
  - Nausea [None]
  - Condition aggravated [None]
  - Insomnia [None]
  - Clumsiness [None]
  - Therapy change [None]
  - Dizziness [None]
  - Decreased appetite [None]
  - Withdrawal syndrome [None]
  - Weight decreased [None]
  - Lethargy [None]
  - Dyspnoea [None]
  - Hyperhidrosis [None]
  - Dysstasia [None]
  - Headache [None]
  - Diarrhoea [None]
  - Hypothyroidism [None]

NARRATIVE: CASE EVENT DATE: 20180728
